FAERS Safety Report 4883834-9 (Version None)
Quarter: 2006Q1

REPORT INFORMATION
  Report Type: 
  Country: None (occurrence: None)
  Receive Date: 20060113
  Receipt Date: 20060106
  Transmission Date: 20060701
  Serious: Yes (Other)
  Sender: FDA-Public Use
  Company Number: 2006-01-0484

PATIENT
  Sex: Male

DRUGS (1)
  1. PEG-INTRON [Suspect]
     Indication: HEPATITIS C
     Dates: start: 20040601

REACTIONS (4)
  - BIPOLAR DISORDER [None]
  - BRAIN DAMAGE [None]
  - CONDITION AGGRAVATED [None]
  - HOMICIDAL IDEATION [None]
